FAERS Safety Report 10340553 (Version 7)
Quarter: 2015Q2

REPORT INFORMATION
  Report Type: Spontaneous
  Country: US (occurrence: US)
  Receive Date: 20140724
  Receipt Date: 20150619
  Transmission Date: 20150821
  Serious: Yes (Hospitalization, Other)
  Sender: FDA-Public Use
  Company Number: US-GLAXOSMITHKLINE-A1078315A

PATIENT
  Age: 53 Year
  Sex: Female

DRUGS (8)
  1. FLOLAN [Suspect]
     Active Substance: EPOPROSTENOL SODIUM
     Dosage: 20.5 NG/KG/MIN CONTINUOUSLY
     Dates: start: 20140502
  2. ADCIRCA [Concomitant]
     Active Substance: TADALAFIL
  3. FLOLAN [Suspect]
     Active Substance: EPOPROSTENOL SODIUM
     Dosage: 20.5 NG/KG/MIN, CONCENTRATION 45,000 NG/ML, VIAL STRENGTH 1.5 MG, CO
     Route: 042
     Dates: end: 20150413
  4. FLOLAN [Suspect]
     Active Substance: EPOPROSTENOL SODIUM
     Indication: COR PULMONALE CHRONIC
     Dosage: DOSE: 11.5 NG/KG/MIN, CONC: 30000 NG/ML, PUMP RATE: 62 ML/DAY, VIAL STRENGTH: 1.5DOSE: 14.9 NG/[...]
     Route: 042
     Dates: start: 20140502
  5. FLOLAN [Suspect]
     Active Substance: EPOPROSTENOL SODIUM
     Indication: PULMONARY HYPERTENSION
     Dosage: UNK
     Dates: start: 20140502
  6. FLOLAN [Suspect]
     Active Substance: EPOPROSTENOL SODIUM
     Dosage: 20.5NG/KG/MIN, CONTINUOUSLY
     Dates: start: 20140502
  7. ASPIRIN. [Concomitant]
     Active Substance: ASPIRIN
  8. FLOLAN [Suspect]
     Active Substance: EPOPROSTENOL SODIUM
     Dosage: 20.5 NG/KG/MIN, CONCENTRATION 45,000 NG/ML, PUMP RATE 73 ML/DAY,  VIAL STRENGTH 1.5 MG, CO
     Route: 042

REACTIONS (11)
  - Hospitalisation [Unknown]
  - Medical device complication [Recovered/Resolved]
  - Therapy cessation [Recovered/Resolved]
  - Diarrhoea [Unknown]
  - Device infusion issue [Unknown]
  - Flushing [Unknown]
  - Pain [Unknown]
  - Rash pruritic [Not Recovered/Not Resolved]
  - Arthralgia [Unknown]
  - Gallbladder operation [Unknown]
  - Pain in jaw [Unknown]

NARRATIVE: CASE EVENT DATE: 20150107
